FAERS Safety Report 7921712-9 (Version None)
Quarter: 2011Q4

REPORT INFORMATION
  Report Type: 
  Country: None (occurrence: None)
  Receive Date: 20111117
  Receipt Date: 20110317
  Transmission Date: 20120403
  Serious: Yes (Hospitalization)
  Sender: FDA-Public Use
  Company Number: US-GLAXOSMITHKLINE-A0919502A

PATIENT
  Age: 24 Year
  Sex: Male
  Weight: 54.4 kg

DRUGS (8)
  1. DIGOXIN [Concomitant]
  2. FLOLAN [Suspect]
     Indication: PULMONARY ARTERIAL HYPERTENSION
     Route: 042
     Dates: start: 20100716
  3. LISINOPRIL [Concomitant]
  4. MULTAQ [Concomitant]
  5. REVATIO [Concomitant]
  6. METOPROLOL TARTRATE [Concomitant]
  7. LEXAPRO [Concomitant]
  8. FUROSEMIDE [Concomitant]

REACTIONS (2)
  - ARTHRALGIA [None]
  - CARDIAC ARREST [None]
